FAERS Safety Report 6453890-5 (Version None)
Quarter: 2009Q4

REPORT INFORMATION
  Report Type: 
  Country: None (occurrence: None)
  Receive Date: 20091124
  Receipt Date: 20091116
  Transmission Date: 20100525
  Serious: Yes (Other)
  Sender: FDA-Public Use
  Company Number: US-ASTRAZENECA-2009SE26656

PATIENT

DRUGS (1)
  1. SEROQUEL [Suspect]
     Dosage: QUARTER OF 100 MG
     Route: 048
     Dates: start: 20000101

REACTIONS (9)
  - BLOOD GLUCOSE INCREASED [None]
  - HYPERHIDROSIS [None]
  - NASOPHARYNGITIS [None]
  - PAIN [None]
  - PANIC ATTACK [None]
  - ROAD TRAFFIC ACCIDENT [None]
  - UPPER LIMB FRACTURE [None]
  - WEIGHT ABNORMAL [None]
  - WRONG TECHNIQUE IN DRUG USAGE PROCESS [None]
